FAERS Safety Report 8350861-9 (Version None)
Quarter: 2012Q2

REPORT INFORMATION
  Report Type: 
  Country: None (occurrence: None)
  Receive Date: 20120510
  Receipt Date: 20120501
  Transmission Date: 20120825
  Serious: Yes (Hospitalization, Other)
  Sender: FDA-Public Use
  Company Number: US-ROCHE-719266

PATIENT
  Sex: Female
  Weight: 81.6 kg

DRUGS (5)
  1. SERZONE [Concomitant]
     Indication: DEPRESSION
  2. ORTHO TRI-CYCLEN [Concomitant]
  3. WELLBUTRIN [Concomitant]
  4. ACCUTANE [Suspect]
     Indication: ACNE
     Route: 048
     Dates: start: 19981121, end: 19990420
  5. PHENTERMINE [Concomitant]

REACTIONS (17)
  - INFLAMMATORY BOWEL DISEASE [None]
  - HOT FLUSH [None]
  - MOUTH ULCERATION [None]
  - CROHN'S DISEASE [None]
  - SMALL INTESTINAL OBSTRUCTION [None]
  - EPISTAXIS [None]
  - SKIN EXFOLIATION [None]
  - NASAL DRYNESS [None]
  - DRY SKIN [None]
  - BLOOD PRESSURE INCREASED [None]
  - CHEILITIS [None]
  - DEPRESSION [None]
  - ILEAL STENOSIS [None]
  - PROCTOCOLITIS [None]
  - COLITIS ULCERATIVE [None]
  - DYSPNOEA [None]
  - DRY EYE [None]
